FAERS Safety Report 10220668 (Version 1)
Quarter: 2014Q2

REPORT INFORMATION
  Report Type: Spontaneous
  Country: AU (occurrence: None)
  Receive Date: 20140604
  Receipt Date: 20140604
  Transmission Date: 20141212
  Serious: Yes (Hospitalization)
  Sender: FDA-Public Use
  Company Number: FK201402060

PATIENT
  Age: 31 Year
  Sex: Male

DRUGS (3)
  1. FLUOROURACIL [Suspect]
     Indication: COLORECTAL CANCER STAGE III
     Dosage: OVER 46 HOURS
  2. LEUCOVORIN (FOLINIC ACID) [Concomitant]
  3. OXALIPLATIN (OXALIPLATIN) [Concomitant]

REACTIONS (2)
  - Myocardial infarction [None]
  - Myocardial ischaemia [None]
